FAERS Safety Report 6826034-5 (Version None)
Quarter: 2010Q3

REPORT INFORMATION
  Report Type: 
  Country: None (occurrence: None)
  Receive Date: 20100709
  Receipt Date: 20100701
  Transmission Date: 20110219
  Serious: Yes (Other)
  Sender: FDA-Public Use
  Company Number: US-ASTRAZENECA-2007UW07743

PATIENT
  Age: 19738 Day
  Sex: Female
  Weight: 64.4 kg

DRUGS (18)
  1. SEROQUEL [Suspect]
     Indication: HALLUCINATION
     Route: 048
     Dates: start: 20030101
  2. SEROQUEL [Suspect]
     Indication: BIPOLAR DISORDER
     Route: 048
     Dates: start: 20030101
  3. SEROQUEL [Suspect]
     Route: 048
     Dates: start: 20040408, end: 20040624
  4. SEROQUEL [Suspect]
     Route: 048
     Dates: start: 20040408, end: 20040624
  5. ABILIFY [Concomitant]
     Dates: start: 20040101
  6. DEPAKOTE [Concomitant]
     Dosage: 500MG-2000MG
     Dates: start: 20051215
  7. PROTONIX [Concomitant]
     Dates: start: 20051215
  8. LORATADINE [Concomitant]
     Dates: start: 20051215
  9. LEVOXYL [Concomitant]
     Dosage: 90MCG-125MCG
     Dates: start: 20051215
  10. AMBIEN [Concomitant]
     Dosage: 5MG-10MG
     Dates: start: 20051215
  11. CRESTOR [Concomitant]
     Dates: start: 20060620
  12. COGENTIN [Concomitant]
     Dates: start: 20060815
  13. LASIX [Concomitant]
     Dates: start: 20060724
  14. LOPRESSOR [Concomitant]
     Dates: start: 20060724
  15. TRAZODONE HYDROCHLORIDE [Concomitant]
     Dates: start: 20000212
  16. CYMBALTA [Concomitant]
  17. RISPERDAL [Concomitant]
     Indication: BIPOLAR DISORDER
     Dates: start: 20000101, end: 20040101
  18. RISPERDAL [Concomitant]
     Dosage: 0.5-2 MG
     Dates: start: 20070411, end: 20070625

REACTIONS (11)
  - BLOOD CHOLESTEROL INCREASED [None]
  - BLOOD TRIGLYCERIDES INCREASED [None]
  - DIABETES INSIPIDUS [None]
  - DIABETIC COMA [None]
  - DIABETIC NEPHROPATHY [None]
  - HYPERGLYCAEMIA [None]
  - HYPERLIPIDAEMIA [None]
  - MALAISE [None]
  - NEPHROGENIC DIABETES INSIPIDUS [None]
  - OBESITY [None]
  - TYPE 2 DIABETES MELLITUS [None]
